FAERS Safety Report 4730914-4 (Version None)
Quarter: 2005Q3

REPORT INFORMATION
  Report Type: 
  Country: None (occurrence: None)
  Receive Date: 20050726
  Receipt Date: 20040203
  Transmission Date: 20060218
  Serious: Yes (Hospitalization)
  Sender: FDA-Public Use
  Company Number: 04ITY0105

PATIENT
  Sex: Male

DRUGS (4)
  1. AGGRASTAT [Suspect]
     Indication: ANGIOPLASTY
     Dosage: (2 HR)
     Dates: start: 20040226, end: 20040227
  2. AGGRASTAT [Suspect]
     Indication: ELECTROCARDIOGRAM ST SEGMENT
  3. ASPIRIN [Concomitant]
  4. CLOPIDOGREL BISULFATE [Concomitant]

REACTIONS (1)
  - THROMBOCYTOPENIA [None]
